FAERS Safety Report 7820269-0 (Version None)
Quarter: 2011Q4

REPORT INFORMATION
  Report Type: 
  Country: None (occurrence: None)
  Receive Date: 20111012
  Receipt Date: 20110927
  Transmission Date: 20120403
  Serious: Yes (Other)
  Sender: FDA-Public Use
  Company Number: 2011SP045869

PATIENT
  Age: 61 Year
  Sex: Female

DRUGS (2)
  1. PEG-INTRON [Suspect]
     Indication: HEPATITIS C
     Dates: start: 20100112, end: 20100419
  2. RIBAVIRIN [Suspect]
     Indication: HEPATITIS C
     Dates: start: 20100112, end: 20100419

REACTIONS (8)
  - ANXIETY [None]
  - BONE PAIN [None]
  - ABASIA [None]
  - HEPATIC CIRRHOSIS [None]
  - ANGER [None]
  - PLATELET COUNT DECREASED [None]
  - DEPRESSION [None]
  - ASTHENIA [None]
